FAERS Safety Report 12322778 (Version 5)
Quarter: 2016Q3

REPORT INFORMATION
  Report Type: Report from Study
  Country: DE (occurrence: DE)
  Receive Date: 20160502
  Receipt Date: 20160729
  Transmission Date: 20161109
  Serious: Yes (Hospitalization)
  Sender: FDA-Public Use
  Company Number: DE-SA-2016SA065764

PATIENT
  Age: 42 Year
  Sex: Female
  Weight: 70 kg

DRUGS (5)
  1. RESTEX [Concomitant]
     Active Substance: BENSERAZIDE
     Indication: RESTLESS LEGS SYNDROME
     Dosage: 100MG/25MG
     Route: 048
     Dates: start: 20110809
  2. LEMTRADA [Suspect]
     Active Substance: ALEMTUZUMAB
     Indication: MULTIPLE SCLEROSIS
     Route: 041
     Dates: start: 20131125, end: 20131129
  3. FAMPYRA [Concomitant]
     Active Substance: DALFAMPRIDINE
     Indication: PARESIS
     Route: 048
     Dates: start: 20130521
  4. LEMTRADA [Suspect]
     Active Substance: ALEMTUZUMAB
     Indication: MULTIPLE SCLEROSIS
     Route: 041
     Dates: start: 20141201, end: 20141203
  5. L-THYROX [Concomitant]
     Active Substance: LEVOTHYROXINE SODIUM
     Indication: HYPOTHYROIDISM
     Route: 048
     Dates: start: 20151210

REACTIONS (11)
  - Multiple sclerosis relapse [Recovering/Resolving]
  - Tinnitus [Unknown]
  - Quadriparesis [Unknown]
  - Nausea [Unknown]
  - Feeling abnormal [Unknown]
  - Pyramidal tract syndrome [Unknown]
  - Vertigo [Recovering/Resolving]
  - Pain in extremity [Recovering/Resolving]
  - Anxiety disorder [Recovering/Resolving]
  - Muscle spasticity [Recovering/Resolving]
  - Hypoacusis [Unknown]

NARRATIVE: CASE EVENT DATE: 20151210
